FAERS Safety Report 18984803 (Version 2)
Quarter: 2021Q1

REPORT INFORMATION
  Report Type: Report from Study
  Country: None (occurrence: IL)
  Receive Date: 20210308
  Receipt Date: 20210312
  Transmission Date: 20210420
  Serious: No
  Sender: FDA-Public Use
  Company Number: IL-ABBVIE-21K-082-3799151-00

PATIENT
  Sex: Female

DRUGS (2)
  1. HUMIRA [Suspect]
     Active Substance: ADALIMUMAB
     Indication: BEHCET^S SYNDROME
     Route: 058
     Dates: start: 20181101, end: 20191101
  2. COLCHICINE. [Suspect]
     Active Substance: COLCHICINE
     Indication: FAMILIAL MEDITERRANEAN FEVER
     Route: 065

REACTIONS (8)
  - Drug ineffective [Unknown]
  - Joint injury [Unknown]
  - Arthropathy [Not Recovered/Not Resolved]
  - Familial mediterranean fever [Not Recovered/Not Resolved]
  - Therapeutic product effect decreased [Unknown]
  - Blood test abnormal [Unknown]
  - Behcet^s syndrome [Not Recovered/Not Resolved]
  - Liver injury [Unknown]
